FAERS Safety Report 25603339 (Version 2)
Quarter: 2025Q3

REPORT INFORMATION
  Report Type: Spontaneous
  Country: US (occurrence: US)
  Receive Date: 20250724
  Receipt Date: 20250724
  Transmission Date: 20251020
  Serious: No
  Sender: ABBVIE
  Company Number: US-ABBVIE-6385212

PATIENT
  Age: 9 Year
  Sex: Female
  Weight: 53.523 kg

DRUGS (1)
  1. LUPRON DEPOT-PED [Suspect]
     Active Substance: LEUPROLIDE ACETATE
     Indication: Precocious puberty
     Dosage: FORM STRENGTH: 45 MILLIGRAM
     Route: 030
     Dates: start: 20241220

REACTIONS (6)
  - Gait disturbance [Recovered/Resolved]
  - Injection site swelling [Recovering/Resolving]
  - Injection site abscess [Recovering/Resolving]
  - Injection site pain [Recovering/Resolving]
  - Injection site inflammation [Recovering/Resolving]
  - Injection site erythema [Recovering/Resolving]

NARRATIVE: CASE EVENT DATE: 20250714
